FAERS Safety Report 9154750 (Version 1)
Quarter: 2013Q1

REPORT INFORMATION
  Report Type: Spontaneous
  Country: DK (occurrence: None)
  Receive Date: 20130208
  Receipt Date: 20130208
  Transmission Date: 20140127
  Serious: Yes (Hospitalization)
  Sender: FDA-Public Use
  Company Number: 2013MA000929

PATIENT
  Age: 45 Year
  Sex: Female

DRUGS (10)
  1. CITALOPRAM HYDROBROMIDE [Suspect]
     Indication: DEPRESSION
     Route: 048
  2. VENLAFAXINE (VENLAFAXINE) [Suspect]
     Indication: DEPRESSION
     Route: 048
  3. CARBIMAZOLE [Suspect]
     Indication: HYPERTHYROIDISM
     Route: 048
  4. LEVOTHYROXINE SODIUM [Concomitant]
  5. DIAZEPAM [Concomitant]
  6. ACETYLSALICYLIC ACID [Concomitant]
  7. THIAMINE [Concomitant]
  8. VITAMINS A AND D [Concomitant]
  9. PROPRANOLOL [Concomitant]
  10. VITAMIN B COMPLEX STRONG [Concomitant]

REACTIONS (1)
  - Neutropenic sepsis [None]
